FAERS Safety Report 15887616 (Version 1)
Quarter: 2019Q1

REPORT INFORMATION
  Report Type: Spontaneous
  Country: DE (occurrence: DE)
  Receive Date: 20190130
  Receipt Date: 20190130
  Transmission Date: 20190417
  Serious: Yes (Hospitalization)
  Sender: FDA-Public Use
  Company Number: DE-ACCORD-104171

PATIENT
  Age: 68 Year
  Sex: Female
  Weight: 78 kg

DRUGS (5)
  1. DOCETAXEL. [Suspect]
     Active Substance: DOCETAXEL
     Indication: PRODUCT USED FOR UNKNOWN INDICATION
     Dosage: 75 MG/M2 KOF,EVRY 3 WEEKS,INJ./INFUSION SOLUTION
     Route: 042
  2. HUMALOG MIX [Concomitant]
     Active Substance: INSULIN LISPRO
     Dosage: 50/50 IU, 35-35-0, INJECTION / INFUSION SOLUTION
     Route: 058
  3. PERTUZUMAB. [Suspect]
     Active Substance: PERTUZUMAB
     Indication: PRODUCT USED FOR UNKNOWN INDICATION
     Dosage: 420 MG,EVERY 3 WEEKS,INJECTION/ INFUSION SOLUTION
     Route: 042
  4. LEVOTHYROXINE. [Concomitant]
     Active Substance: LEVOTHYROXINE
     Dosage: 50 UG, 1-0-0
     Route: 048
  5. TRASTUZUMAB. [Suspect]
     Active Substance: TRASTUZUMAB
     Indication: PRODUCT USED FOR UNKNOWN INDICATION
     Dosage: 6MG/KG BODY WT,EVRY 3WEEKS,INJ/INFUSION SOLUTION
     Route: 042

REACTIONS (4)
  - Vomiting [Unknown]
  - General physical health deterioration [Unknown]
  - Leukopenia [Unknown]
  - Nausea [Unknown]
